FAERS Safety Report 15953947 (Version 1)
Quarter: 2019Q1

REPORT INFORMATION
  Report Type: Report from Study
  Country: FR (occurrence: FR)
  Receive Date: 20190213
  Receipt Date: 20190213
  Transmission Date: 20190417
  Serious: Yes (Other)
  Sender: FDA-Public Use
  Company Number: FR-SUN PHARMACEUTICAL INDUSTRIES LTD-2019RR-198899

PATIENT
  Age: 69 Year
  Sex: Female

DRUGS (6)
  1. LATANOPROST. [Suspect]
     Active Substance: LATANOPROST
     Indication: INTRAOCULAR PRESSURE INCREASED
     Dosage: QD
     Route: 061
  2. LATANOPROST. [Suspect]
     Active Substance: LATANOPROST
     Indication: OPEN ANGLE GLAUCOMA
  3. ACETAZOLAMIDE 250 MG LANNETT [Suspect]
     Active Substance: ACETAZOLAMIDE
     Indication: INTRAOCULAR PRESSURE INCREASED
     Dosage: 1/2 X 3
     Route: 065
  4. BRIMONIDINE+DORZOLAMIDE [Suspect]
     Active Substance: BRIMONIDINE TARTRATE\DORZOLAMIDE HYDROCHLORIDE
     Indication: INTRAOCULAR PRESSURE INCREASED
     Dosage: BID
     Route: 061
  5. ACETAZOLAMIDE 250 MG LANNETT [Suspect]
     Active Substance: ACETAZOLAMIDE
     Indication: OPEN ANGLE GLAUCOMA
  6. BRIMONIDINE+DORZOLAMIDE [Suspect]
     Active Substance: BRIMONIDINE TARTRATE\DORZOLAMIDE HYDROCHLORIDE
     Indication: OPEN ANGLE GLAUCOMA

REACTIONS (3)
  - Drug ineffective [Unknown]
  - Disease progression [Unknown]
  - Drug tolerance decreased [Unknown]
